FAERS Safety Report 9143151 (Version 1)
Quarter: 2013Q1

REPORT INFORMATION
  Report Type: Spontaneous
  Country: US (occurrence: US)
  Receive Date: 20130306
  Receipt Date: 20130306
  Transmission Date: 20140127
  Serious: No
  Sender: FDA-Public Use
  Company Number: US-ENDO PHARMACEUTICALS INC.-OPCR20121486

PATIENT
  Age: 58 None
  Sex: Male
  Weight: 79.45 kg

DRUGS (3)
  1. OPANA ER [Suspect]
     Indication: PAIN
     Dosage: 400 MG
     Route: 048
     Dates: start: 2012, end: 2012
  2. OPANA ER [Concomitant]
     Indication: PRODUCT USED FOR UNKNOWN INDICATION
     Route: 048
     Dates: end: 2012
  3. MS CONTIN [Concomitant]
     Route: 048

REACTIONS (2)
  - Medication residue present [Recovered/Resolved]
  - Withdrawal syndrome [Recovered/Resolved]
